FAERS Safety Report 12863015 (Version 1)
Quarter: 2016Q4

REPORT INFORMATION
  Report Type: Spontaneous
  Country: US (occurrence: US)
  Receive Date: 20161019
  Receipt Date: 20161019
  Transmission Date: 20170207
  Serious: No
  Sender: FDA-Public Use
  Company Number: US-BAYER-2016-193731

PATIENT
  Age: 76 Year
  Sex: Male
  Weight: 99.77 kg

DRUGS (2)
  1. ALEVE PM [Suspect]
     Active Substance: DIPHENHYDRAMINE HYDROCHLORIDE\NAPROXEN SODIUM
     Indication: INSOMNIA
     Dosage: 1 DF, UNK
     Route: 048
     Dates: end: 2016
  2. ALLOPURINOL. [Concomitant]
     Active Substance: ALLOPURINOL
     Indication: NEPHROLITHIASIS
     Dosage: UNK

REACTIONS (3)
  - Memory impairment [Recovered/Resolved]
  - Expired product administered [None]
  - Product use issue [Unknown]

NARRATIVE: CASE EVENT DATE: 2016
